FAERS Safety Report 11030452 (Version 1)
Quarter: 2015Q2

REPORT INFORMATION
  Report Type: Spontaneous
  Country: US (occurrence: None)
  Receive Date: 20150414
  Receipt Date: 20150414
  Transmission Date: 20150821
  Serious: Yes (Hospitalization)
  Sender: FDA-Public Use
  Company Number: None

PATIENT
  Age: 50 Year
  Sex: Male
  Weight: 99 kg

DRUGS (4)
  1. TAXOL [Suspect]
     Active Substance: PACLITAXEL
     Dates: end: 20150225
  2. 5-FLUOROURACIL (5-FU) [Suspect]
     Active Substance: FLUOROURACIL
     Dates: end: 20150310
  3. ELOXATIN [Suspect]
     Active Substance: OXALIPLATIN
     Dates: end: 20150310
  4. CARBOPLATIN. [Suspect]
     Active Substance: CARBOPLATIN
     Dates: end: 20150225

REACTIONS (10)
  - Abdominal wall abscess [None]
  - Dizziness [None]
  - Nausea [None]
  - Hyperhidrosis [None]
  - Retching [None]
  - Pneumoperitoneum [None]
  - Chest pain [None]
  - Haemoglobin decreased [None]
  - Neck pain [None]
  - Hyperventilation [None]

NARRATIVE: CASE EVENT DATE: 20150317
